FAERS Safety Report 7202679-8 (Version None)
Quarter: 2010Q4

REPORT INFORMATION
  Report Type: 
  Country: None (occurrence: None)
  Receive Date: 20101229
  Receipt Date: 20101216
  Transmission Date: 20110411
  Serious: Yes (Hospitalization)
  Sender: FDA-Public Use
  Company Number: NL-ACTELION-A-CH2010-42202

PATIENT
  Sex: Female
  Weight: 79 kg

DRUGS (5)
  1. BOSENTAN TABLET 125 MG EU [Suspect]
     Indication: PULMONARY HYPERTENSION
     Dosage: 125 MG, BID
     Route: 048
     Dates: start: 20100918, end: 20101122
  2. BOSENTAN TABLET 125 MG EU [Suspect]
     Dosage: 62.5 MG, BID
     Route: 048
     Dates: start: 20100818, end: 20100917
  3. COMBIVENT [Concomitant]
  4. PREDNISONE [Concomitant]
  5. FUROSEMIDE [Concomitant]

REACTIONS (3)
  - CHRONIC OBSTRUCTIVE PULMONARY DISEASE [None]
  - DYSPNOEA [None]
  - VENTILATION PERFUSION MISMATCH [None]
